FAERS Safety Report 5207952-0 (Version None)
Quarter: 2007Q1

REPORT INFORMATION
  Report Type: 
  Country: None (occurrence: None)
  Receive Date: 20070115
  Receipt Date: 20070109
  Transmission Date: 20070707
  Serious: Yes (Hospitalization)
  Sender: FDA-Public Use
  Company Number: US-ELI_LILLY_AND_COMPANY-US200609003637

PATIENT
  Age: 57 Year
  Sex: Female
  Weight: 111.11 kg

DRUGS (1)
  1. ZYPREXA [Suspect]
     Indication: DEPRESSION
     Dates: start: 20040101

REACTIONS (4)
  - ARTERIOGRAM [None]
  - CHEST PAIN [None]
  - DIABETES MELLITUS [None]
  - VISION BLURRED [None]
